FAERS Safety Report 12405297 (Version 1)
Quarter: 2016Q2

REPORT INFORMATION
  Report Type: Spontaneous
  Country: US (occurrence: None)
  Receive Date: 20160525
  Receipt Date: 20160525
  Transmission Date: 20160815
  Serious: Yes (Death)
  Sender: FDA-Public Use
  Company Number: None

PATIENT
  Age: 27 Year
  Sex: Male
  Weight: 68 kg

DRUGS (13)
  1. BIDACODYL [Concomitant]
  2. FLUCONAZOLE. [Concomitant]
     Active Substance: FLUCONAZOLE
  3. ANTITHYMOCYTE GLOBULIN, 25 MG VIAL GENZYME CORP/ HOSPITAL PHARMACY [Suspect]
     Active Substance: LAPINE T-LYMPHOCYTE IMMUNE GLOBULIN
     Indication: TRANSPLANT
     Dosage: 150 MG X 3 DOSES INTRAVENOUS DRIP
     Route: 041
     Dates: start: 20160310, end: 20160313
  4. DIPHENHYDRAMINE. [Concomitant]
     Active Substance: DIPHENHYDRAMINE
  5. METHYLPRENISOLONE TACROLIMUS [Concomitant]
  6. METOPROLOL TARTRATE. [Concomitant]
     Active Substance: METOPROLOL TARTRATE
  7. FENTANYL. [Concomitant]
     Active Substance: FENTANYL
  8. FAMOTIDINE. [Concomitant]
     Active Substance: FAMOTIDINE
  9. ONDANSETRON [Concomitant]
     Active Substance: ONDANSETRON
  10. MYCOPHENOLATE [Concomitant]
     Active Substance: MYCOPHENOLIC ACID
  11. LIDOCAINE PATH [Concomitant]
  12. ACETAMINOPHEN. [Concomitant]
     Active Substance: ACETAMINOPHEN
  13. OXYCODONE [Concomitant]
     Active Substance: OXYCODONE

REACTIONS (8)
  - Cardio-respiratory arrest [None]
  - Urine output decreased [None]
  - Surgical procedure repeated [None]
  - Arterial haemorrhage [None]
  - Hypotension [None]
  - Post procedural persistent drain fluid [None]
  - Unresponsive to stimuli [None]
  - Lethargy [None]

NARRATIVE: CASE EVENT DATE: 20160313
